FAERS Safety Report 7953403-2 (Version None)
Quarter: 2011Q4

REPORT INFORMATION
  Report Type: 
  Country: None (occurrence: None)
  Receive Date: 20111202
  Receipt Date: 20111119
  Transmission Date: 20120403
  Serious: Yes (Other)
  Sender: FDA-Public Use
  Company Number: CA-PAR PHARMACEUTICAL, INC-2011SCPR003437

PATIENT

DRUGS (5)
  1. QUETIAPINE [Suspect]
     Indication: INSOMNIA
     Dosage: 25 MG, HS
     Route: 065
  2. RISPERIDONE [Suspect]
     Dosage: 0.25 MG, / DAY
     Route: 065
  3. RISPERIDONE [Suspect]
     Indication: MANIA
     Dosage: 25 MG, EVERY 2 WEEKS
     Route: 051
  4. LITHIUM [Suspect]
     Indication: MANIA
  5. LITHIUM [Suspect]
     Indication: BIPOLAR I DISORDER
     Dosage: 1050 MG, / DAY
     Route: 065

REACTIONS (3)
  - DIABETES INSIPIDUS [None]
  - DRUG INTERACTION [None]
  - TREMOR [None]
